FAERS Safety Report 5027745-7 (Version None)
Quarter: 2006Q2

REPORT INFORMATION
  Report Type: 
  Country: None (occurrence: None)
  Receive Date: 20060609
  Receipt Date: 20060531
  Transmission Date: 20061013
  Serious: Yes (Other)
  Sender: FDA-Public Use
  Company Number: 2006035994

PATIENT
  Age: 70 Year
  Sex: Male

DRUGS (1)
  1. CELEBREX [Suspect]
     Indication: RHEUMATOID ARTHRITIS
     Dosage: ORAL
     Route: 048

REACTIONS (1)
  - CHRONIC LYMPHOCYTIC LEUKAEMIA [None]
